FAERS Safety Report 8175489-5 (Version None)
Quarter: 2012Q1

REPORT INFORMATION
  Report Type: 
  Country: None (occurrence: None)
  Receive Date: 20120229
  Receipt Date: 20120221
  Transmission Date: 20120608
  Serious: Yes (Other)
  Sender: FDA-Public Use
  Company Number: US-ASTRAZENECA-2012SE12133

PATIENT
  Age: 67 Year

DRUGS (2)
  1. CRESTOR [Suspect]
     Route: 048
  2. VITAMIN TAB [Concomitant]

REACTIONS (2)
  - BLOOD PRESSURE INCREASED [None]
  - UPPER LIMB FRACTURE [None]
